FAERS Safety Report 13629791 (Version 1)
Quarter: 2017Q2

REPORT INFORMATION
  Report Type: Spontaneous
  Country: US (occurrence: US)
  Receive Date: 20170531
  Receipt Date: 20170531
  Transmission Date: 20170830
  Serious: No
  Sender: FDA-Public Use
  Company Number: US-ASTELLAS-1246898

PATIENT
  Sex: Female

DRUGS (10)
  1. CLARITHROMYCIN. [Concomitant]
     Active Substance: CLARITHROMYCIN
  2. LIPITOR [Concomitant]
     Active Substance: ATORVASTATIN CALCIUM
  3. CALTRATE [Concomitant]
     Active Substance: CALCIUM CARBONATE
  4. AMOXICILLIN. [Concomitant]
     Active Substance: AMOXICILLIN
  5. CALTRATE [Concomitant]
     Active Substance: CALCIUM CARBONATE
  6. AMOXICILLIN. [Concomitant]
     Active Substance: AMOXICILLIN
  7. CLARITHROMYCIN. [Concomitant]
     Active Substance: CLARITHROMYCIN
  8. TARCEVA [Suspect]
     Active Substance: ERLOTINIB HYDROCHLORIDE
     Indication: LUNG NEOPLASM MALIGNANT
     Route: 048
     Dates: start: 20130525, end: 20130607
  9. VITAMIN E [Concomitant]
     Active Substance: .ALPHA.-TOCOPHEROL
  10. LIPITOR [Concomitant]
     Active Substance: ATORVASTATIN CALCIUM

REACTIONS (9)
  - Vomiting [Unknown]
  - Blister [Not Recovered/Not Resolved]
  - Diarrhoea [Unknown]
  - Gastric infection [Unknown]
  - Skin exfoliation [Recovered/Resolved]
  - Rash [Recovered/Resolved]
  - Alopecia [Not Recovered/Not Resolved]
  - Weight decreased [Unknown]
  - Asthenia [Not Recovered/Not Resolved]
